FAERS Safety Report 19165141 (Version 2)
Quarter: 2021Q2

REPORT INFORMATION
  Report Type: Spontaneous
  Country: US (occurrence: US)
  Receive Date: 20210421
  Receipt Date: 20210423
  Transmission Date: 20210717
  Serious: No
  Sender: FDA-Public Use
  Company Number: US-BIOGEN-2021BI01001857

PATIENT
  Age: 8 Year

DRUGS (1)
  1. SPINRAZA [Suspect]
     Active Substance: NUSINERSEN
     Indication: SPINAL MUSCULAR ATROPHY
     Route: 065
     Dates: start: 20210412

REACTIONS (4)
  - Procedural pain [Recovered/Resolved]
  - Abdominal pain upper [Unknown]
  - Rash [Unknown]
  - Migraine [Unknown]

NARRATIVE: CASE EVENT DATE: 20210412
